FAERS Safety Report 8592725-1 (Version None)
Quarter: 2012Q3

REPORT INFORMATION
  Report Type: 
  Country: None (occurrence: None)
  Receive Date: 20120814
  Receipt Date: 20120710
  Transmission Date: 20120928
  Serious: No
  Sender: FDA-Public Use
  Company Number: US-COVIDIEN/TYCO HEALTHCARE/MALLINCKRODT-T201202850

PATIENT
  Sex: Male

DRUGS (16)
  1. FENTANYL [Suspect]
     Indication: PAIN
     Dosage: 50 UG/HR
     Dates: start: 20120709
  2. LEVEMIR [Concomitant]
     Dosage: 11 UNITS ONCE DAILY
  3. ASPERCREME [Concomitant]
     Indication: BACK PAIN
  4. NOVOLOG [Concomitant]
     Indication: DIABETES MELLITUS
     Dosage: 3 UNITS BEFORE EACH MEAL
  5. SIMVASTATIN [Concomitant]
  6. NORCO [Concomitant]
     Indication: PAIN
     Dosage: SEVERAL PER DAY
  7. OMEPRAZOLE [Concomitant]
  8. FENTANYL [Suspect]
     Dosage: 25 UG/HR
     Dates: start: 20120621, end: 20120708
  9. LEVEMIR [Concomitant]
     Dosage: 14 UNITS ONCE DAILY
  10. BUPROPION HCL [Suspect]
  11. FINASTERIDE [Concomitant]
  12. TAMSULOSIN HCL [Concomitant]
  13. MIRALAX                            /00754501/ [Concomitant]
  14. GABAPENTIN [Concomitant]
  15. ARICEPT [Concomitant]
  16. LEVEMIR [Concomitant]
     Indication: DIABETES MELLITUS
     Dosage: 10 UNITS ONCE DAILY

REACTIONS (1)
  - HYPOGLYCAEMIA [None]
